FAERS Safety Report 4327980-7 (Version None)
Quarter: 2004Q1

REPORT INFORMATION
  Report Type: 
  Country: None (occurrence: None)
  Receive Date: 20040325
  Receipt Date: 20040312
  Transmission Date: 20041129
  Serious: Yes (Hospitalization)
  Sender: FDA-Public Use
  Company Number: S04-USA-01397-01

PATIENT
  Age: 72 Year
  Sex: Male

DRUGS (1)
  1. LEXAPRO [Suspect]
     Indication: DEPRESSION
     Dosage: 10 MG QD PO
     Route: 048
     Dates: start: 20040301, end: 20040301

REACTIONS (3)
  - ANTIBODY TEST POSITIVE [None]
  - AREFLEXIA [None]
  - GUILLAIN-BARRE SYNDROME [None]
